FAERS Safety Report 19380122 (Version 1)
Quarter: 2021Q2

REPORT INFORMATION
  Report Type: Spontaneous
  Country: US (occurrence: US)
  Receive Date: 20210607
  Receipt Date: 20210607
  Transmission Date: 20210717
  Serious: No
  Sender: FDA-Public Use
  Company Number: US-TEVA-2021-US-1913852

PATIENT
  Age: 69 Year
  Sex: Female

DRUGS (2)
  1. ESTRADIOL. [Suspect]
     Active Substance: ESTRADIOL
     Dosage: IN THE EVENING
     Route: 065
     Dates: start: 20210506
  2. ESTRADIOL. [Suspect]
     Active Substance: ESTRADIOL
     Dosage: IN THE EVENING
     Route: 065
     Dates: start: 20210507

REACTIONS (3)
  - Abdominal pain [Unknown]
  - Urinary tract infection [Unknown]
  - Erythema [Recovered/Resolved with Sequelae]

NARRATIVE: CASE EVENT DATE: 20210506
